FAERS Safety Report 7529765-7 (Version None)
Quarter: 2011Q2

REPORT INFORMATION
  Report Type: 
  Country: None (occurrence: None)
  Receive Date: 20110607
  Receipt Date: 20110523
  Transmission Date: 20111010
  Serious: Yes (Hospitalization)
  Sender: FDA-Public Use
  Company Number: US-WATSON-2011-06827

PATIENT
  Age: 53 Year
  Sex: Female

DRUGS (1)
  1. DOBUTAMINE HCL [Suspect]
     Indication: CARDIAC STRESS TEST
     Dosage: UNK

REACTIONS (3)
  - HEADACHE [None]
  - CEREBRAL VASOCONSTRICTION [None]
  - GRAND MAL CONVULSION [None]
